FAERS Safety Report 4421255-3 (Version None)
Quarter: 2004Q3

REPORT INFORMATION
  Report Type: 
  Country: None (occurrence: None)
  Receive Date: 20040804
  Receipt Date: 20040726
  Transmission Date: 20050211
  Serious: Yes (Other)
  Sender: FDA-Public Use
  Company Number: 2003163059FR

PATIENT
  Age: 69 Year
  Sex: Female

DRUGS (4)
  1. EXEMESTANE [Suspect]
     Indication: BREAST CANCER
     Dosage: 25 MG, QD, ORAL
     Route: 048
     Dates: start: 20010601
  2. LEVOTHYROXINE SODIUM [Concomitant]
  3. HYPERIUM (RILMENIDINE) [Concomitant]
  4. ENDOTELON (VITIS VINIFERA) [Concomitant]

REACTIONS (2)
  - OSTEOPOROSIS [None]
  - SPINAL FRACTURE [None]
